FAERS Safety Report 6309877-6 (Version None)
Quarter: 2009Q3

REPORT INFORMATION
  Report Type: 
  Country: None (occurrence: None)
  Receive Date: 20090814
  Receipt Date: 20090731
  Transmission Date: 20100115
  Serious: Yes (Other)
  Sender: FDA-Public Use
  Company Number: ES-AVENTIS-200712943GDDC

PATIENT
  Age: 77 Year
  Sex: Female

DRUGS (9)
  1. DOCETAXEL [Suspect]
     Indication: GENITOURINARY TRACT NEOPLASM
     Route: 042
     Dates: start: 20070104, end: 20070104
  2. PACLITAXEL [Suspect]
     Dosage: DOSE: UNK
     Dates: start: 20061213, end: 20061213
  3. CARBOPLATIN [Concomitant]
     Indication: GENITOURINARY TRACT NEOPLASM
     Route: 042
     Dates: start: 20070104, end: 20070104
  4. ATENOLOL [Concomitant]
  5. DEXAMETHASONE [Concomitant]
     Indication: PREMEDICATION
     Dosage: DOSE: 20 MG IV 30 MINS BEFORE CHEMOTHERAPY
     Route: 042
  6. DEXAMETHASONE [Concomitant]
     Dosage: DOSE: 8 MG EVERY 12 HOURS FOR 3 DAYS STARTING ONE DAY PRIOR TO DOCETAXEL
     Route: 048
  7. DIPHENHYDRAMINE HCL [Concomitant]
     Indication: PREMEDICATION
     Route: 042
     Dates: start: 20070104, end: 20070104
  8. RANITIDINE [Concomitant]
     Indication: PREMEDICATION
     Dosage: DOSE: 50 MG
     Route: 042
  9. HEPARIN [Concomitant]
     Indication: PULMONARY INFARCTION

REACTIONS (5)
  - BACK PAIN [None]
  - DRUG HYPERSENSITIVITY [None]
  - DYSPNOEA [None]
  - OXYGEN SATURATION DECREASED [None]
  - RASH ERYTHEMATOUS [None]
